FAERS Safety Report 25790719 (Version 1)
Quarter: 2025Q3

REPORT INFORMATION
  Report Type: Spontaneous
  Country: US (occurrence: None)
  Receive Date: 20250910
  Receipt Date: 20250910
  Transmission Date: 20251020
  Serious: Yes (Other)
  Sender: FDA-CTU
  Company Number: None

PATIENT
  Age: 56 Year
  Sex: Female

DRUGS (5)
  1. IMATINIB MESYLATE [Suspect]
     Active Substance: IMATINIB MESYLATE
     Dosage: 400MG DAILY ?
  2. SPRYCEL [Suspect]
     Active Substance: DASATINIB
  3. LEVOTHYROXINE [Suspect]
     Active Substance: LEVOTHYROXINE
  4. ACETAMINOPHEN\HYDROCODONE [Suspect]
     Active Substance: ACETAMINOPHEN\HYDROCODONE
  5. AMLODIPINE [Suspect]
     Active Substance: AMLODIPINE BESYLATE

REACTIONS (8)
  - Pericardial effusion [None]
  - Pain [None]
  - Amnesia [None]
  - Nausea [None]
  - Constipation [None]
  - Diarrhoea [None]
  - Fall [None]
  - Drug interaction [None]
